FAERS Safety Report 8858557 (Version 2)
Quarter: 2012Q4

REPORT INFORMATION
  Report Type: 
  Country: DE (occurrence: DE)
  Receive Date: 20121024
  Receipt Date: 20121126
  Transmission Date: 20130627
  Serious: Yes (Other)
  Sender: FDA-Public Use
  Company Number: DE-ASTRAZENECA-2012SE79282

PATIENT
  Sex: Male

DRUGS (6)
  1. BELOC ZOK [Suspect]
     Route: 048
     Dates: start: 2003
  2. PROGRAF [Concomitant]
  3. DIAZEPAM [Concomitant]
  4. ASS 100 [Concomitant]
  5. VIGANTOLETTEN [Concomitant]
  6. MAGNESIUM VERLA DRAGEES [Concomitant]

REACTIONS (3)
  - Infection reactivation [Unknown]
  - Renal impairment [Not Recovered/Not Resolved]
  - Pharyngeal erythema [Not Recovered/Not Resolved]
